FAERS Safety Report 4469222-8 (Version None)
Quarter: 2004Q4

REPORT INFORMATION
  Report Type: 
  Country: None (occurrence: None)
  Receive Date: 20041005
  Receipt Date: 20040922
  Transmission Date: 20050328
  Serious: Yes (Life-Threatening)
  Sender: FDA-Public Use
  Company Number: 2004-09-1498

PATIENT
  Age: 20 Year
  Sex: Female

DRUGS (4)
  1. CLARITIN [Suspect]
     Indication: NASOPHARYNGITIS
     Dosage: 10 MG ORAL
     Route: 048
     Dates: start: 20040921, end: 20040921
  2. CLARITIN [Suspect]
     Indication: RHINITIS
     Dosage: 10 MG ORAL
     Route: 048
     Dates: start: 20040921, end: 20040921
  3. QVAR 40 [Concomitant]
  4. KAKKON-TO [Concomitant]

REACTIONS (1)
  - ANAPHYLACTIC SHOCK [None]
